FAERS Safety Report 5359111-9 (Version None)
Quarter: 2007Q2

REPORT INFORMATION
  Report Type: 
  Country: None (occurrence: None)
  Receive Date: 20070615
  Receipt Date: 20070613
  Transmission Date: 20071010
  Serious: Yes (Other)
  Sender: FDA-Public Use
  Company Number: HQWYE608114JUN07

PATIENT
  Age: 22 Year
  Sex: Female

DRUGS (2)
  1. TYGACIL [Suspect]
     Indication: STAPHYLOCOCCAL INFECTION
     Dosage: 50 MG
     Route: 042
     Dates: start: 20070607, end: 20070601
  2. TYGACIL [Suspect]
     Dosage: 50 MG
     Route: 042
     Dates: start: 20070601

REACTIONS (5)
  - BLOOD PRESSURE INCREASED [None]
  - CHEST PAIN [None]
  - HEART RATE INCREASED [None]
  - PYREXIA [None]
  - VOMITING [None]
